FAERS Safety Report 6246955-4 (Version None)
Quarter: 2009Q2

REPORT INFORMATION
  Report Type: 
  Country: None (occurrence: None)
  Receive Date: 20090624
  Receipt Date: 20090624
  Transmission Date: 20091009
  Serious: Yes (Death)
  Sender: FDA-Public Use
  Company Number: None

PATIENT
  Age: 43 Year
  Sex: Male
  Weight: 54 kg

DRUGS (6)
  1. EFAVIRENZ [Suspect]
     Indication: HIV INFECTION
     Dosage: 600 MG QD ORAL
     Route: 048
     Dates: start: 20090402, end: 20090416
  2. TRUVADA [Suspect]
     Indication: HIV INFECTION
     Dosage: 500 MG QD ORAL
     Route: 048
     Dates: start: 20090402, end: 20090416
  3. ISONIAZID [Concomitant]
  4. RIFAMPIN [Concomitant]
  5. PYRAZINAMIDE [Concomitant]
  6. ETHAMBUTOL [Concomitant]

REACTIONS (15)
  - BLOOD GLUCOSE INCREASED [None]
  - CYTOMEGALOVIRUS INFECTION [None]
  - DEHYDRATION [None]
  - DIARRHOEA [None]
  - DISORIENTATION [None]
  - DYSPNOEA [None]
  - GASTROENTERITIS [None]
  - MALNUTRITION [None]
  - OESOPHAGEAL CANDIDIASIS [None]
  - PULMONARY TUBERCULOSIS [None]
  - RENAL FAILURE ACUTE [None]
  - SEPTIC SHOCK [None]
  - SOPOR [None]
  - UNEVALUABLE EVENT [None]
  - VOMITING [None]
